FAERS Safety Report 25460434 (Version 4)
Quarter: 2025Q3

REPORT INFORMATION
  Report Type: Spontaneous
  Country: US (occurrence: US)
  Receive Date: 20250620
  Receipt Date: 20250702
  Transmission Date: 20251021
  Serious: No
  Sender: NOBELPHARMA AMERICA, LLC
  Company Number: US-Nobelpharma America, LLC-NPA-2025-01033

PATIENT
  Sex: Female

DRUGS (2)
  1. HYFTOR [Suspect]
     Active Substance: SIROLIMUS
     Indication: Angiofibroma
     Dosage: APPLY TOPICALLY TWICE DAILY FOR ANGIOFIBROMAS AS DIRECTED
     Route: 061
     Dates: start: 20250603
  2. HYFTOR [Suspect]
     Active Substance: SIROLIMUS
     Indication: Tuberous sclerosis complex

REACTIONS (7)
  - Eye pruritus [Unknown]
  - Lacrimation increased [Unknown]
  - Sensitive skin [Unknown]
  - Dry skin [Unknown]
  - Ocular hyperaemia [Unknown]
  - Pruritus [Unknown]
  - Application site pain [Unknown]
